FAERS Safety Report 4930073-9 (Version None)
Quarter: 2006Q1

REPORT INFORMATION
  Report Type: 
  Country: None (occurrence: None)
  Receive Date: 20060228
  Receipt Date: 20060206
  Transmission Date: 20060701
  Serious: Yes (Disabling)
  Sender: FDA-Public Use
  Company Number: GB200602001175

PATIENT
  Age: 58 Year
  Sex: Female

DRUGS (6)
  1. YENTREVE (DULOXETINE HYDROCHLORIDE) CAPSULE [Suspect]
     Indication: URINARY INCONTINENCE
     Dosage: 40 MG, ORAL
     Route: 048
     Dates: start: 20051110, end: 20060101
  2. FLUTICASONE W/SALMETEROL (FLUTICASONE, SALMETEROL) INHALER [Concomitant]
  3. PREMARIN [Concomitant]
  4. TIOTROPIUM BROMIDE [Concomitant]
  5. LEVOTHYROXINE [Concomitant]
  6. AMLODIPINE [Concomitant]

REACTIONS (6)
  - DECREASED APPETITE [None]
  - DYSURIA [None]
  - OEDEMA PERIPHERAL [None]
  - PRURITUS GENERALISED [None]
  - SKIN EXFOLIATION [None]
  - WEIGHT DECREASED [None]
